FAERS Safety Report 23363686 (Version 1)
Quarter: 2024Q1

REPORT INFORMATION
  Report Type: Spontaneous
  Country: CA (occurrence: CA)
  Receive Date: 20240103
  Receipt Date: 20240103
  Transmission Date: 20240409
  Serious: Yes (Other)
  Sender: FDA-Public Use
  Company Number: CA-ABBVIE-5568616

PATIENT
  Age: 68 Year
  Sex: Female
  Weight: 90 kg

DRUGS (14)
  1. BOTOX [Suspect]
     Active Substance: ONABOTULINUMTOXINA
     Indication: Product used for unknown indication
     Dosage: TIME INTERVAL: AS NECESSARY
     Route: 065
  2. INFLECTRA [Concomitant]
     Active Substance: INFLIXIMAB-DYYB
     Indication: Crohn^s disease
     Dosage: LAST ADMIN DATE: 2023
     Dates: start: 20230706
  3. INFLECTRA [Concomitant]
     Active Substance: INFLIXIMAB-DYYB
     Indication: Crohn^s disease
     Dosage: FREQUENCY TEXT: WEEK 0, 4, 6, 8, LAST ADMIN DATE: 2023
     Dates: start: 20230512
  4. INFLECTRA [Concomitant]
     Active Substance: INFLIXIMAB-DYYB
     Indication: Crohn^s disease
     Dosage: FREQUENCY TEXT: WEEK 0, 4, 6, 8, LAST ADMIN DATE: 2022
     Dates: start: 20220913
  5. INFLECTRA [Concomitant]
     Active Substance: INFLIXIMAB-DYYB
     Indication: Crohn^s disease
     Dosage: LAST ADMIN DATE: 2023
     Dates: start: 20231106
  6. INFLECTRA [Concomitant]
     Active Substance: INFLIXIMAB-DYYB
     Indication: Crohn^s disease
     Dosage: AFTER 5 WEEKS AND 4 DAYS, 500 MILLIGRAM, LAST ADMIN DATE: 2023
     Dates: start: 20230817
  7. INFLECTRA [Concomitant]
     Active Substance: INFLIXIMAB-DYYB
     Indication: Crohn^s disease
     Dosage: FREQUENCY TEXT: WEEK 0, 4, 6, 8, LAST ADMIN DATE: 2023
     Dates: start: 20230119
  8. INFLECTRA [Concomitant]
     Active Substance: INFLIXIMAB-DYYB
     Indication: Crohn^s disease
     Dates: start: 20231218
  9. INFLECTRA [Concomitant]
     Active Substance: INFLIXIMAB-DYYB
     Indication: Crohn^s disease
     Dosage: FREQUENCY TEXT: WEEK 0, 4, 6, 8, LAST ADMIN DATE: 2023
     Dates: start: 20230317
  10. INFLECTRA [Concomitant]
     Active Substance: INFLIXIMAB-DYYB
     Indication: Crohn^s disease
     Dosage: FREQUENCY TEXT: WEEK 0, 4, 6, 8, LAST ADMIN DATE: 2022
     Dates: start: 20220426
  11. INFLECTRA [Concomitant]
     Active Substance: INFLIXIMAB-DYYB
     Indication: Crohn^s disease
     Dosage: LAST ADMIN DATE:2023
     Dates: start: 20230925
  12. INFLECTRA [Concomitant]
     Active Substance: INFLIXIMAB-DYYB
     Indication: Crohn^s disease
     Dosage: FREQUENCY TEXT: WEEK 0, 4, 6, 8, LAST ADMIN DATE: 2022
     Dates: start: 20220712
  13. INFLECTRA [Concomitant]
     Active Substance: INFLIXIMAB-DYYB
     Indication: Crohn^s disease
     Dosage: FREQUENCY TEXT: WEEK 0, 4, 6, 8, LAST ADMIN DATE: 2022
     Dates: start: 20221123
  14. INFLECTRA [Concomitant]
     Active Substance: INFLIXIMAB-DYYB
     Indication: Crohn^s disease
     Dosage: FREQUENCY TEXT: WEEK 0, 4, 6, 8, LAST ADMIN DATE:2022
     Dates: start: 20220509

REACTIONS (17)
  - Condition aggravated [Recovered/Resolved]
  - Blood pressure systolic increased [Unknown]
  - Skin exfoliation [Not Recovered/Not Resolved]
  - Therapeutic response shortened [Unknown]
  - Dry skin [Not Recovered/Not Resolved]
  - Arthralgia [Recovered/Resolved]
  - Anal fissure [Not Recovered/Not Resolved]
  - Inappropriate schedule of product administration [Unknown]
  - Diarrhoea [Unknown]
  - Abdominal pain [Unknown]
  - Peripheral swelling [Recovered/Resolved]
  - Neuralgia [Unknown]
  - Headache [Unknown]
  - Headache [Recovering/Resolving]
  - COVID-19 [Recovering/Resolving]
  - Illness [Not Recovered/Not Resolved]
  - Dry skin [Unknown]

NARRATIVE: CASE EVENT DATE: 20220101
